FAERS Safety Report 6675342-X (Version None)
Quarter: 2010Q2

REPORT INFORMATION
  Report Type: 
  Country: None (occurrence: None)
  Receive Date: 20100409
  Receipt Date: 20100211
  Transmission Date: 20101027
  Serious: No
  Sender: FDA-Public Use
  Company Number: A0844585A

PATIENT
  Age: 81 Year

DRUGS (1)
  1. TYKERB [Suspect]
     Indication: DRUG USE FOR UNKNOWN INDICATION
     Dosage: 4TAB PER DAY
     Route: 048
     Dates: start: 20100204, end: 20100207

REACTIONS (3)
  - ASTHENIA [None]
  - DIARRHOEA [None]
  - ILL-DEFINED DISORDER [None]
